FAERS Safety Report 4850836-8 (Version None)
Quarter: 2005Q4

REPORT INFORMATION
  Report Type: 
  Country: None (occurrence: None)
  Receive Date: 20051208
  Receipt Date: 20051208
  Transmission Date: 20060501
  Serious: No
  Sender: FDA-Public Use
  Company Number: None

PATIENT

DRUGS (2)
  1. OXALIPLATIN [Suspect]
     Indication: COLON CANCER
     Dosage: 125 MG IVPB Q 2 WEEKS 12 CYCLES
     Route: 042
  2. FOLFOX6 REGIMEN [Concomitant]

REACTIONS (1)
  - NEUROPATHY [None]
